FAERS Safety Report 9053425 (Version 1)
Quarter: 2013Q1

REPORT INFORMATION
  Report Type: Spontaneous
  Country: ES (occurrence: ES)
  Receive Date: 20130208
  Receipt Date: 20130208
  Transmission Date: 20140127
  Serious: Yes (Death, Hospitalization)
  Sender: FDA-Public Use
  Company Number: ES-BRISTOL-MYERS SQUIBB COMPANY-17318536

PATIENT
  Age: 60 Year
  Sex: Female
  Weight: 68 kg

DRUGS (10)
  1. MITOMYCIN [Suspect]
     Indication: COLORECTAL CANCER
     Dosage: LAST DOSE PRIOR TO SAE:09AUG11
     Route: 042
     Dates: start: 20110131, end: 20110811
  2. CISPLATIN FOR INJ [Suspect]
     Indication: COLORECTAL CANCER
     Dosage: LAST DOSE PRIOR TO SAE:09AUG11
     Route: 042
     Dates: start: 20110131, end: 20110811
  3. 5-FLUOROURACIL [Suspect]
     Indication: COLORECTAL CANCER
     Dosage: LAST DOSE PRIOR TO SAE:19JUL11
     Route: 042
     Dates: start: 20110131, end: 20110811
  4. BEVACIZUMAB [Suspect]
     Indication: COLORECTAL CANCER
     Dosage: LAST DOSE PRIOR TO SAE:09AUG11?31JAN11-11AUG11(193DAYS),?UNK-10SEP11
     Route: 042
     Dates: start: 20110131
  5. IRINOTECAN [Suspect]
     Indication: COLORECTAL CANCER
     Dosage: LAST DOSE PRIOR TO SAE:09AUG11
     Route: 042
     Dates: start: 20110131, end: 20110811
  6. NEXIUM [Concomitant]
     Dates: start: 2004
  7. SERETIDE [Concomitant]
     Dates: start: 2004
  8. VENTOLIN [Concomitant]
  9. RIVOTRIL [Concomitant]
     Dates: start: 2004
  10. MORPHINE [Concomitant]
     Dates: start: 20110809, end: 20110909

REACTIONS (2)
  - General physical health deterioration [Fatal]
  - Hyperglycaemia [Recovered/Resolved]
